FAERS Safety Report 10766516 (Version 4)
Quarter: 2015Q3

REPORT INFORMATION
  Report Type: Spontaneous
  Country: JP (occurrence: JP)
  Receive Date: 20150205
  Receipt Date: 20150724
  Transmission Date: 20151125
  Serious: Yes (Hospitalization, Other)
  Sender: FDA-Public Use
  Company Number: JP-PFIZER INC-2015043858

PATIENT
  Age: 66 Year
  Sex: Male
  Weight: 56 kg

DRUGS (13)
  1. BLOPRESS [Concomitant]
     Active Substance: CANDESARTAN CILEXETIL
     Indication: HYPERTENSION
     Dosage: 4 MG (2 TABLETS), 2X/DAY (AFTER BREAKFAST AND AFTER DINNER)
     Route: 048
     Dates: end: 20150128
  2. BEZATOL SR [Concomitant]
     Active Substance: BEZAFIBRATE
     Indication: HYPERLIPIDAEMIA
     Dosage: 100 MG (2 TABLETS), 2X/DAY(AFTER BREAKFAST AND AFTER DINNER)
     Route: 048
     Dates: end: 20150128
  3. HIRUDOID [Concomitant]
     Active Substance: GLYCOSAMINOGLYCANS
     Indication: ECZEMA
     Route: 061
  4. MOHRUS [Concomitant]
     Active Substance: KETOPROFEN
     Indication: BACK PAIN
     Route: 061
  5. CHAMPIX [Suspect]
     Active Substance: VARENICLINE TARTRATE
     Indication: SMOKING CESSATION THERAPY
     Dosage: 0.5 MG, 1X/DAY
     Route: 048
     Dates: start: 20150108, end: 20150110
  6. CHAMPIX [Suspect]
     Active Substance: VARENICLINE TARTRATE
     Dosage: 0.5 MG, 2X/DAY
     Route: 048
     Dates: start: 20150111, end: 20150114
  7. ZYLORIC [Concomitant]
     Active Substance: ALLOPURINOL
     Indication: HYPERURICAEMIA
     Dosage: 50 MG (A HALF TABLET), 1X/DAY(AFTER BREAKFAST)
     Route: 048
     Dates: end: 20150128
  8. ANTEBATE [Concomitant]
     Active Substance: BETAMETHASONE DIPROPIONATE
     Indication: ECZEMA
     Route: 061
  9. PERSANTIN L [Concomitant]
     Indication: RENAL DISORDER
     Dosage: 150 MG (2 CAPSULES), 2X/DAY (AFTER BREAKFAST AND AFTER DINNER)
     Route: 048
     Dates: end: 20150128
  10. XYZAL [Concomitant]
     Active Substance: LEVOCETIRIZINE DIHYDROCHLORIDE
     Indication: ECZEMA
     Dosage: 5 MG (1 TABLET), 1X/DAY (BEFORE BEDTIME)
     Route: 048
     Dates: end: 20150128
  11. CHAMPIX [Suspect]
     Active Substance: VARENICLINE TARTRATE
     Dosage: 1 MG, 2X/DAY
     Route: 048
     Dates: start: 20150115, end: 20150127
  12. CHAMPIX [Suspect]
     Active Substance: VARENICLINE TARTRATE
     Dosage: 2 MG, 2X/DAY
     Route: 048
     Dates: start: 20150128, end: 20150128
  13. NORVASC [Concomitant]
     Active Substance: AMLODIPINE BESYLATE
     Indication: HYPERTENSION
     Dosage: 2.5 MG (1 TABLET), 1X/DAY (AFTER BREAKFAST)
     Route: 048
     Dates: end: 20150128

REACTIONS (11)
  - Altered state of consciousness [Recovered/Resolved]
  - Abnormal behaviour [Recovering/Resolving]
  - Pyrexia [Recovered/Resolved]
  - Tremor [Recovering/Resolving]
  - Dizziness [Recovered/Resolved]
  - Renal impairment [Recovering/Resolving]
  - Condition aggravated [Recovering/Resolving]
  - Cerebral infarction [Unknown]
  - Sinus tachycardia [Unknown]
  - Meningitis aseptic [Unknown]
  - Hallucination, visual [Unknown]

NARRATIVE: CASE EVENT DATE: 20150123
